FAERS Safety Report 7801546-6 (Version None)
Quarter: 2011Q4

REPORT INFORMATION
  Report Type: 
  Country: None (occurrence: None)
  Receive Date: 20111007
  Receipt Date: 20110928
  Transmission Date: 20120403
  Serious: Yes (Other)
  Sender: FDA-Public Use
  Company Number: TW-JNJFOC-20110912331

PATIENT
  Age: 62 Year
  Sex: Female

DRUGS (6)
  1. RISPERDAL [Suspect]
     Dosage: WITH GRADUAL TITRATION TO 4 MG/DAY DURING THE SUBSEQUENT 4 DAYS.
     Route: 065
  2. PALIPERIDONE [Suspect]
     Indication: SCHIZOPHRENIA
     Route: 048
  3. RISPERDAL [Suspect]
     Route: 065
  4. RISPERDAL [Suspect]
     Dosage: WITH GRADUAL TITRATION TO 4 MG/DAY DURING THE SUBSEQUENT 4 DAYS.
     Route: 065
  5. RISPERDAL [Suspect]
     Indication: SCHIZOPHRENIA
     Route: 065
  6. VALPROATE SODIUM [Concomitant]
     Route: 065

REACTIONS (1)
  - MANIA [None]
